FAERS Safety Report 16733725 (Version 1)
Quarter: 2019Q3

REPORT INFORMATION
  Report Type: Spontaneous
  Country: CN (occurrence: CN)
  Receive Date: 20190823
  Receipt Date: 20190823
  Transmission Date: 20191005
  Serious: Yes (Hospitalization)
  Sender: FDA-Public Use
  Company Number: CN-SA-2019SA226959

PATIENT
  Age: 55 Year
  Sex: Male
  Weight: 76 kg

DRUGS (4)
  1. PLAVIX [Suspect]
     Active Substance: CLOPIDOGREL BISULFATE
     Indication: ANTICOAGULANT THERAPY
     Dosage: 75 MG, QD
     Route: 048
     Dates: start: 20190703, end: 20190715
  2. APROVEL [Suspect]
     Active Substance: IRBESARTAN
     Indication: BLOOD PRESSURE DECREASED
     Dosage: 150 MG, QD
     Route: 048
     Dates: start: 20190703, end: 20190715
  3. ATORVASTATIN CALCIUM. [Suspect]
     Active Substance: ATORVASTATIN CALCIUM
     Indication: LIPIDS DECREASED
     Dosage: 20 MG, QD
     Route: 048
     Dates: start: 20190703, end: 20190715
  4. LEVAMLODIPINE BESYLATE [Suspect]
     Active Substance: LEVAMLODIPINE BESYLATE
     Indication: BLOOD PRESSURE DECREASED
     Dosage: 2.5 MG, QD
     Route: 048
     Dates: start: 20190703, end: 20190715

REACTIONS (2)
  - Erythema multiforme [Not Recovered/Not Resolved]
  - Pruritus [Not Recovered/Not Resolved]

NARRATIVE: CASE EVENT DATE: 20190715
